FAERS Safety Report 8270019-1 (Version None)
Quarter: 2012Q2

REPORT INFORMATION
  Report Type: 
  Country: None (occurrence: None)
  Receive Date: 20120410
  Receipt Date: 20120404
  Transmission Date: 20120825
  Serious: No
  Sender: FDA-Public Use
  Company Number: US-B.I. PHARMACEUTICALS,INC./RIDGEFIELD-2012-BP-06364BP

PATIENT
  Age: 55 Year
  Sex: Female

DRUGS (2)
  1. TRADJENTA [Suspect]
  2. METFORMIN HCL [Concomitant]

REACTIONS (2)
  - DIZZINESS [None]
  - ABDOMINAL DISCOMFORT [None]
